FAERS Safety Report 9777732 (Version 2)
Quarter: 2014Q1

REPORT INFORMATION
  Report Type: Report from Study
  Country: NL (occurrence: NL)
  Receive Date: 20131223
  Receipt Date: 20140203
  Transmission Date: 20141002
  Serious: Yes (Hospitalization)
  Sender: FDA-Public Use
  Company Number: NL-ROCHE-1320499

PATIENT
  Age: 46 Year
  Sex: Female

DRUGS (9)
  1. CAPECITABINE [Suspect]
     Indication: GASTRIC CANCER
     Dosage: DATE OF LAST TREATMENT: 06/DEC/2013; CUMULATIVE DOSE: 50 MG
     Route: 048
     Dates: start: 20131104
  2. CISPLATIN [Suspect]
     Indication: GASTRIC CANCER
     Dosage: DATE OF LAST TREATMENT: 02/DEC/2013
     Route: 042
     Dates: start: 20131104
  3. OXYNORM [Concomitant]
     Dosage: PRN
     Route: 065
     Dates: start: 201312
  4. FLUCONAZOLE [Concomitant]
     Route: 065
     Dates: start: 20131210
  5. PANTOPRAZOL [Concomitant]
     Route: 065
     Dates: start: 20130606
  6. OXYCODON [Concomitant]
     Route: 065
     Dates: start: 201312
  7. ULCOGANT [Concomitant]
  8. QUESTRAN [Concomitant]
     Dosage: DAILY DOSE: 3 SACHETS
     Route: 065
     Dates: start: 20131029
  9. PCM (GERMANY) [Concomitant]
     Route: 065
     Dates: start: 20131225

REACTIONS (1)
  - Radiation oesophagitis [Recovered/Resolved]
